FAERS Safety Report 9867484 (Version 2)
Quarter: 2014Q1

REPORT INFORMATION
  Report Type: Spontaneous
  Country: US (occurrence: US)
  Receive Date: 20140204
  Receipt Date: 20140214
  Transmission Date: 20141002
  Serious: Yes (Other)
  Sender: FDA-Public Use
  Company Number: US-PFIZER INC-2014029106

PATIENT
  Age: 79 Year
  Sex: Female
  Weight: 77.1 kg

DRUGS (1)
  1. XALATAN [Suspect]
     Indication: GLAUCOMA
     Dosage: UNK, 1X/DAY
     Route: 047

REACTIONS (2)
  - Cataract [Not Recovered/Not Resolved]
  - Body height decreased [Unknown]
